FAERS Safety Report 24072722 (Version 1)
Quarter: 2024Q3

REPORT INFORMATION
  Report Type: Spontaneous
  Country: GB (occurrence: GB)
  Receive Date: 20240710
  Receipt Date: 20240710
  Transmission Date: 20241016
  Serious: Yes (Disabling, Other)
  Sender: TEVA
  Company Number: GB-MHRA-TPP17680614C969841YC1719835277354

PATIENT
  Age: 60 Year
  Sex: Male
  Weight: 92 kg

DRUGS (8)
  1. PRAVASTATIN [Suspect]
     Active Substance: PRAVASTATIN
     Dosage: AT NIGHT,
     Route: 065
     Dates: start: 20240430
  2. MOMETASONE [Concomitant]
     Active Substance: MOMETASONE
     Dosage: TWO SPRAYS TO EACH NOSTRIL ONCE A DAY, WHEN SYM...
     Route: 045
     Dates: start: 20240315
  3. ATORVASTATIN [Concomitant]
     Active Substance: ATORVASTATIN
     Dates: start: 20240116, end: 20240430
  4. VENTOLIN [Concomitant]
     Active Substance: ALBUTEROL SULFATE
     Dosage: 2QDS,
     Dates: start: 20231201
  5. RAMIPRIL [Concomitant]
     Active Substance: RAMIPRIL
     Indication: Ill-defined disorder
     Dates: start: 20240229
  6. METFORMIN [Concomitant]
     Active Substance: METFORMIN HYDROCHLORIDE
     Dates: start: 20240229
  7. SITAGLIPTIN [Concomitant]
     Active Substance: SITAGLIPTIN
     Dates: start: 20240229
  8. SOPROBEC [Concomitant]
     Route: 055
     Dates: start: 20231201

REACTIONS (1)
  - Asthma [Recovered/Resolved]
